FAERS Safety Report 6784469-3 (Version None)
Quarter: 2010Q2

REPORT INFORMATION
  Report Type: 
  Country: None (occurrence: None)
  Receive Date: 20100622
  Receipt Date: 20100615
  Transmission Date: 20101027
  Serious: Yes (Hospitalization, Other)
  Sender: FDA-Public Use
  Company Number: DE-JNJFOC-20100604830

PATIENT
  Age: 98 Year

DRUGS (1)
  1. TAVANIC [Suspect]
     Indication: BRONCHITIS
     Route: 048

REACTIONS (3)
  - COLITIS [None]
  - DIARRHOEA [None]
  - VOMITING [None]
